FAERS Safety Report 5301255-1 (Version None)
Quarter: 2007Q2

REPORT INFORMATION
  Report Type: 
  Country: None (occurrence: None)
  Receive Date: 20070411
  Receipt Date: 20070328
  Transmission Date: 20071010
  Serious: Yes (Hospitalization)
  Sender: FDA-Public Use
  Company Number: 2007-00371

PATIENT
  Age: 53 Year
  Sex: Female
  Weight: 68 kg

DRUGS (6)
  1. VELCADE [Suspect]
     Indication: MULTIPLE MYELOMA
     Dates: end: 20070102
  2. DEXAMETHASONE TAB [Suspect]
     Indication: MULTIPLE MYELOMA
     Dosage: 40.00 MG, ORAL
     Route: 048
     Dates: end: 20070102
  3. THALIDOMIDE [Suspect]
     Indication: MULTIPLE MYELOMA
     Dosage: 200.00 MG, ORAL
     Route: 048
     Dates: start: 20060601, end: 20070119
  4. AUGMENTIN '125' [Suspect]
     Indication: BRONCHITIS
     Dosage: ORAL
     Route: 048
     Dates: start: 20070105, end: 20070107
  5. CEFPODOXIME PROXETIL [Suspect]
     Indication: BRONCHITIS
     Dosage: ORAL
     Route: 048
     Dates: start: 20070105, end: 20070112
  6. OFLOXACIN [Suspect]
     Dates: start: 20070105, end: 20070107

REACTIONS (8)
  - ANAEMIA [None]
  - BRONCHITIS [None]
  - DEHYDRATION [None]
  - EOSINOPHILIA [None]
  - HAEMODIALYSIS [None]
  - PLATELET COUNT INCREASED [None]
  - RASH PAPULAR [None]
  - RENAL FAILURE ACUTE [None]
